FAERS Safety Report 18998921 (Version 3)
Quarter: 2021Q2

REPORT INFORMATION
  Report Type: Report from Study
  Country: US (occurrence: US)
  Receive Date: 20210311
  Receipt Date: 20210625
  Transmission Date: 20210717
  Serious: Yes (Hospitalization, Other)
  Sender: FDA-Public Use
  Company Number: US-TAKEDA-2021TUS013799

PATIENT
  Sex: Female
  Weight: 36.74 kg

DRUGS (44)
  1. DIPHENHYDRAMINE. [Concomitant]
     Active Substance: DIPHENHYDRAMINE
     Route: 065
  2. POTASSIUM [Concomitant]
     Active Substance: POTASSIUM
     Route: 065
  3. DURAGESIC [Concomitant]
     Active Substance: FENTANYL
     Route: 065
  4. HYDROXYZINE [Concomitant]
     Active Substance: HYDROXYZINE HYDROCHLORIDE
  5. PROBIOTIC [BIFIDOBACTERIUM LACTIS] [Concomitant]
     Active Substance: BIFIDOBACTERIUM ANIMALIS LACTIS
  6. DIAZEPAM. [Concomitant]
     Active Substance: DIAZEPAM
  7. EYE DROPS [NAPHAZOLINE HYDROCHLORIDE] [Concomitant]
  8. ESTRADIOL. [Concomitant]
     Active Substance: ESTRADIOL
  9. PATADAY [Concomitant]
     Active Substance: OLOPATADINE HYDROCHLORIDE
  10. PANTOPRAZOLE [Concomitant]
     Active Substance: PANTOPRAZOLE
     Route: 065
  11. KETOCONAZOLE. [Concomitant]
     Active Substance: KETOCONAZOLE
  12. CURCUMIN [Concomitant]
     Active Substance: CURCUMIN
  13. VANOS [Concomitant]
     Active Substance: FLUOCINONIDE
  14. ENTERAGAM [Concomitant]
     Active Substance: DIETARY SUPPLEMENT
     Route: 065
  15. ASACOL HD [Concomitant]
     Active Substance: MESALAMINE
     Route: 065
  16. LOMOTIL [LOPERAMIDE HYDROCHLORIDE] [Concomitant]
     Active Substance: LOPERAMIDE HYDROCHLORIDE
     Dosage: UNK
     Route: 065
  17. PHAZYME [SIMETICONE] [Concomitant]
  18. DIFICID [Concomitant]
     Active Substance: FIDAXOMICIN
     Route: 065
  19. RED YEAST RICE WITH PLANT STEROLS [Concomitant]
     Active Substance: DIETARY SUPPLEMENT
  20. PROGESTERONE. [Concomitant]
     Active Substance: PROGESTERONE
  21. LYRICA [Concomitant]
     Active Substance: PREGABALIN
  22. LIDOCAINE. [Concomitant]
     Active Substance: LIDOCAINE
     Route: 065
  23. NORMAL SALINE [Concomitant]
     Active Substance: SODIUM CHLORIDE
     Route: 065
  24. BUDESONIDE. [Concomitant]
     Active Substance: BUDESONIDE
     Route: 065
  25. DIPHENOXYLATE/ATROPINE [Concomitant]
     Active Substance: ATROPINE\DIPHENOXYLATE
     Route: 065
  26. BENTYL [Concomitant]
     Active Substance: DICYCLOMINE HYDROCHLORIDE
     Route: 065
  27. CLOBETASOL [Concomitant]
     Active Substance: CLOBETASOL
  28. CREON [Concomitant]
     Active Substance: PANCRELIPASE AMYLASE\PANCRELIPASE LIPASE\PANCRELIPASE PROTEASE
  29. ZOLPIDEM [Concomitant]
     Active Substance: ZOLPIDEM TARTRATE
  30. LEVOTHYROXINE. [Concomitant]
     Active Substance: LEVOTHYROXINE
  31. EPINEPHRINE. [Concomitant]
     Active Substance: EPINEPHRINE
     Route: 065
  32. CELECOXIB. [Concomitant]
     Active Substance: CELECOXIB
  33. TRIAMCINOLONE [Concomitant]
     Active Substance: TRIAMCINOLONE
  34. HYDROCHLOROTHIAZIDE. [Concomitant]
     Active Substance: HYDROCHLOROTHIAZIDE
  35. VITAMIN D3 [Concomitant]
     Active Substance: CHOLECALCIFEROL
  36. LIDOCAINE/PRILOCAINE [Concomitant]
     Active Substance: LIDOCAINE\PRILOCAINE
     Route: 065
  37. APRISO [Concomitant]
     Active Substance: MESALAMINE
     Route: 065
  38. CHLORDIAZEPOXIDE HYDROCHLORIDE;CLIDINIUM [Concomitant]
     Route: 065
  39. TRAMADOL. [Concomitant]
     Active Substance: TRAMADOL
     Route: 065
  40. HUMAN IMMUNOGLOBULIN; HYALURONIDASE [Suspect]
     Active Substance: HUMAN IMMUNOGLOBULIN G\HYALURONIDASE RECOMBINANT HUMAN
     Indication: IMMUNODEFICIENCY COMMON VARIABLE
     Dosage: 20 GRAM, Q4WEEKS
     Route: 058
     Dates: start: 20160411
  41. ACETAMINOPHEN. [Concomitant]
     Active Substance: ACETAMINOPHEN
     Route: 065
  42. VOLTAREN ACTI [Concomitant]
     Active Substance: DICLOFENAC POTASSIUM
  43. LOPERAMIDE [Concomitant]
     Active Substance: LOPERAMIDE
  44. SIMVASTATIN. [Concomitant]
     Active Substance: SIMVASTATIN

REACTIONS (5)
  - Inappropriate schedule of product administration [Unknown]
  - Pulmonary contusion [Unknown]
  - Fatigue [Unknown]
  - Therapy interrupted [Unknown]
  - Cough [Unknown]
